FAERS Safety Report 5923616-X (Version None)
Quarter: 2008Q4

REPORT INFORMATION
  Report Type: 
  Country: None (occurrence: None)
  Receive Date: 20081020
  Receipt Date: 20081014
  Transmission Date: 20090506
  Serious: Yes (Hospitalization)
  Sender: FDA-Public Use
  Company Number: DE-ABBOTT-08P-062-0481698-00

PATIENT
  Sex: Female

DRUGS (3)
  1. HUMIRA [Suspect]
     Indication: CROHN'S DISEASE
     Route: 058
     Dates: start: 20080623, end: 20080915
  2. CORTISONE [Concomitant]
     Indication: CROHN'S DISEASE
  3. CORTISONE [Concomitant]

REACTIONS (5)
  - BLOOD PRESSURE ABNORMAL [None]
  - DEHYDRATION [None]
  - PYREXIA [None]
  - SALMONELLOSIS [None]
  - VOMITING [None]
